FAERS Safety Report 23497311 (Version 1)
Quarter: 2024Q1

REPORT INFORMATION
  Report Type: Spontaneous
  Country: US (occurrence: None)
  Receive Date: 20240207
  Receipt Date: 20240207
  Transmission Date: 20240410
  Serious: Yes (unspecified)
  Sender: FDA-Public Use
  Company Number: None

PATIENT
  Age: 68 Year
  Sex: Male
  Weight: 102.6 kg

DRUGS (2)
  1. LUMASON [Suspect]
     Active Substance: SULFUR HEXAFLUORIDE
     Indication: Contrast media deposition
     Dosage: 2 MG MILLIGRA (S)
     Dates: start: 20240202, end: 20240202
  2. LUMASON [Concomitant]
     Active Substance: SULFUR HEXAFLUORIDE
     Dates: start: 20240202, end: 20240202

REACTIONS (6)
  - Dizziness [None]
  - Paraesthesia [None]
  - Flushing [None]
  - Musculoskeletal stiffness [None]
  - Speech disorder [None]
  - Contrast media reaction [None]

NARRATIVE: CASE EVENT DATE: 20240202
